FAERS Safety Report 9871897 (Version 2)
Quarter: 2014Q1

REPORT INFORMATION
  Report Type: Spontaneous
  Country: None (occurrence: US)
  Receive Date: 20140205
  Receipt Date: 20140205
  Transmission Date: 20141002
  Serious: No
  Sender: FDA-Public Use
  Company Number: US-ALLERGAN-1305469US

PATIENT
  Age: 65 Year
  Sex: Male

DRUGS (2)
  1. BOTOX [Suspect]
     Indication: BLEPHAROSPASM
     Dosage: 70 TO 80 UNITS
     Route: 030
     Dates: start: 20130327, end: 20130327
  2. BOTOX [Suspect]
     Indication: OROPHARYNGEAL SPASM
     Dosage: 100 UNITS, SINGLE
     Route: 030
     Dates: start: 1982

REACTIONS (5)
  - Trismus [Recovering/Resolving]
  - Oral disorder [Recovering/Resolving]
  - Off label use [Unknown]
  - Eyelid ptosis [Recovering/Resolving]
  - Speech disorder [Recovering/Resolving]
